FAERS Safety Report 4685991-6 (Version None)
Quarter: 2005Q2

REPORT INFORMATION
  Report Type: 
  Country: None (occurrence: None)
  Receive Date: 20050607
  Receipt Date: 20050607
  Transmission Date: 20051028
  Serious: Yes (Disabling)
  Sender: FDA-Public Use
  Company Number: None

PATIENT
  Age: 24 Year
  Sex: Male
  Weight: 65.7716 kg

DRUGS (1)
  1. ACCUTANE [Suspect]
     Indication: ACNE
     Dates: start: 20031015, end: 20040315

REACTIONS (6)
  - ARTHRALGIA [None]
  - DECREASED ACTIVITY [None]
  - DIFFICULTY IN WALKING [None]
  - MOVEMENT DISORDER [None]
  - PAIN [None]
  - TENDON DISORDER [None]
